FAERS Safety Report 15201598 (Version 1)
Quarter: 2018Q3

REPORT INFORMATION
  Report Type: Spontaneous
  Country: US (occurrence: US)
  Receive Date: 20180726
  Receipt Date: 20180726
  Transmission Date: 20181010
  Serious: No
  Sender: FDA-Public Use
  Company Number: US-ACCORD-057857

PATIENT
  Age: 67 Year
  Sex: Female
  Weight: 57.7 kg

DRUGS (1)
  1. LETROZOLE. [Suspect]
     Active Substance: LETROZOLE
     Indication: BREAST CANCER
     Route: 048
     Dates: start: 201602

REACTIONS (2)
  - Blood cholesterol increased [Unknown]
  - Movement disorder [Unknown]

NARRATIVE: CASE EVENT DATE: 201705
